FAERS Safety Report 6206996-X (Version None)
Quarter: 2009Q2

REPORT INFORMATION
  Report Type: 
  Country: None (occurrence: None)
  Receive Date: 20090528
  Receipt Date: 20090519
  Transmission Date: 20091009
  Serious: Yes (Other)
  Sender: FDA-Public Use
  Company Number: PHHY2009BR19814

PATIENT
  Sex: Male

DRUGS (4)
  1. EXFORGE [Suspect]
     Indication: HYPERTENSION
     Dosage: 1 DF (80/5 MG)/DAY
     Route: 048
     Dates: start: 20060101
  2. EXFORGE [Suspect]
     Dosage: 1 DF (160/5 MG), QD
     Route: 048
  3. EXFORGE [Suspect]
     Dosage: 1 DF (160/5 MG), QD
     Route: 048
     Dates: start: 20090401
  4. DAFLON (DIOSMIN) [Concomitant]
     Dosage: 1 DF/DAY
     Route: 048

REACTIONS (6)
  - ABDOMINAL PAIN [None]
  - DIARRHOEA [None]
  - DIZZINESS [None]
  - HYPOTENSION [None]
  - HYPOTHYROIDISM [None]
  - POLLAKIURIA [None]
